FAERS Safety Report 6740364-7 (Version None)
Quarter: 2010Q2

REPORT INFORMATION
  Report Type: 
  Country: None (occurrence: None)
  Receive Date: 20100521
  Receipt Date: 20100510
  Transmission Date: 20101027
  Serious: Yes (Death)
  Sender: FDA-Public Use
  Company Number: 588999

PATIENT
  Age: 81 Year
  Sex: Female

DRUGS (11)
  1. MITOXANTRONE HYDROCHLORIDE [Suspect]
     Indication: NON-HODGKIN'S LYMPHOMA
     Dosage: 12 MG/M 2 MILLIGRAM(S)/SQ. METER, INTRAVENOUS
     Route: 042
  2. (ALLOPURINOL) [Concomitant]
  3. (ANTIBIOTICS) [Concomitant]
  4. (ANTIFUNGALS) [Concomitant]
  5. (BLEOMYCIN) [Concomitant]
  6. CYCLOPHOSPHAMIDE [Concomitant]
  7. ETOPOSIDE [Concomitant]
  8. ONDANSETRON [Concomitant]
  9. (PREDNISOLONE) [Concomitant]
  10. (RITUXIMAB) [Concomitant]
  11. (VINCRCSTINE) [Concomitant]

REACTIONS (2)
  - CARDIOMYOPATHY [None]
  - IDIOSYNCRATIC DRUG REACTION [None]
